FAERS Safety Report 6578763-9 (Version None)
Quarter: 2010Q1

REPORT INFORMATION
  Report Type: 
  Country: None (occurrence: None)
  Receive Date: 20100202
  Receipt Date: 20100122
  Transmission Date: 20100710
  Serious: Yes (Death, Hospitalization)
  Sender: FDA-Public Use
  Company Number: 2008AP003299

PATIENT
  Age: 76 Year
  Sex: Male

DRUGS (20)
  1. TERBINAFINE HCL [Suspect]
     Indication: FUNGAL INFECTION
     Dosage: 250 MG, PO
     Route: 048
     Dates: start: 20081001, end: 20081030
  2. AMOXICILLIN [Concomitant]
  3. BENZYLPENICILLIN (BENZYLPENICILLIN) [Concomitant]
  4. CEFOTAXIME SODIUM [Concomitant]
  5. CEFUROXIME [Concomitant]
  6. CLARITHROMYCIN [Concomitant]
  7. ENOXAPARIN SODIUM [Concomitant]
  8. CODEINE PHOSPHATE (CODEINE PHOSPHATE) [Concomitant]
  9. CYANOCOBALAMIN [Concomitant]
  10. FLUOCLOXACILLIN (FLUCLOXACILLIN) [Concomitant]
  11. FLYOXETINE HYDROCHLORIDE (FLYOXETINE HYDROCHLORIDE) [Concomitant]
  12. GLYCOPYRRONIUM BROMIDE (GLYCOPYRRONIUM BROMIDE) [Concomitant]
  13. HYDROCORTONE [Concomitant]
  14. METOCLOPRAMIDE [Concomitant]
  15. MORPHINE [Concomitant]
  16. ACETAMINOPHEN [Concomitant]
  17. RANITIDINE [Concomitant]
  18. TRAMADOL HCL [Concomitant]
  19. BETAMETHASONE VALERATE [Concomitant]
  20. CLIOQUINOL (CLIOQUINOL) [Concomitant]

REACTIONS (5)
  - BRONCHOPNEUMONIA [None]
  - PLEURAL ADHESION [None]
  - PULMONARY CONGESTION [None]
  - PULMONARY OEDEMA [None]
  - TOXIC EPIDERMAL NECROLYSIS [None]
